FAERS Safety Report 9688942 (Version 1)
Quarter: 2013Q4

REPORT INFORMATION
  Report Type: Spontaneous
  Country: GB (occurrence: None)
  Receive Date: 20131112
  Receipt Date: 20131112
  Transmission Date: 20140711
  Serious: Yes (Disabling)
  Sender: FDA-Public Use
  Company Number: GB-MACLEODS PHARMA-000162

PATIENT
  Age: 91 Year
  Sex: Male
  Weight: 65 kg

DRUGS (1)
  1. DONEPEZIL (DONEPEZIL) [Suspect]
     Indication: PRODUCT USED FOR UNKNOWN INDICATION
     Route: 048

REACTIONS (3)
  - Extrapyramidal disorder [None]
  - Urinary incontinence [None]
  - Parkinsonism [None]
